FAERS Safety Report 7400091-X (Version None)
Quarter: 2011Q2

REPORT INFORMATION
  Report Type: 
  Country: None (occurrence: None)
  Receive Date: 20110407
  Receipt Date: 20100709
  Transmission Date: 20111010
  Serious: Yes (Other)
  Sender: FDA-Public Use
  Company Number: PHHY2010DE90788

PATIENT
  Sex: Male

DRUGS (3)
  1. ANTIBIOTICS [Concomitant]
  2. EXTAVIA [Suspect]
     Dates: start: 20091010
  3. CORTISONE [Concomitant]

REACTIONS (6)
  - BLINDNESS [None]
  - PARAESTHESIA [None]
  - PAIN IN EXTREMITY [None]
  - BACK PAIN [None]
  - TESTICULAR PAIN [None]
  - GAIT DISTURBANCE [None]
